FAERS Safety Report 9912190 (Version 3)
Quarter: 2014Q3

REPORT INFORMATION
  Report Type: Report from Study
  Country: US (occurrence: US)
  Receive Date: 20140220
  Receipt Date: 20140701
  Transmission Date: 20150326
  Serious: Yes (Hospitalization)
  Sender: FDA-Public Use
  Company Number: US-AMGEN-USANI2014010933

PATIENT
  Age: 76 Year
  Sex: Female

DRUGS (3)
  1. DOCETAXEL [Concomitant]
     Active Substance: DOCETAXEL
     Dosage: 150 MG, Q3WK
     Route: 042
     Dates: start: 20140205
  2. PEGFILGRASTIM [Suspect]
     Active Substance: PEGFILGRASTIM
     Indication: PROPHYLAXIS
     Dosage: 6 MG XT, ONCE
     Route: 058
     Dates: start: 20140206
  3. CYCLOPHOSPHAMIDE. [Concomitant]
     Active Substance: CYCLOPHOSPHAMIDE
     Dosage: 1210 MG, Q3WK
     Route: 042
     Dates: start: 20140205

REACTIONS (3)
  - Arthralgia [Recovered/Resolved]
  - Myalgia [Recovered/Resolved]
  - Febrile neutropenia [Recovered/Resolved]

NARRATIVE: CASE EVENT DATE: 20140208
